FAERS Safety Report 16741038 (Version 2)
Quarter: 2019Q4

REPORT INFORMATION
  Report Type: Report from Study
  Country: CN (occurrence: CN)
  Receive Date: 20190826
  Receipt Date: 20191209
  Transmission Date: 20200122
  Serious: Yes (Other)
  Sender: FDA-Public Use
  Company Number: CN-JNJFOC-20190817861

PATIENT
  Age: 48 Year
  Sex: Male
  Weight: 75 kg

DRUGS (10)
  1. SIRTURO [Suspect]
     Active Substance: BEDAQUILINE FUMARATE
     Indication: TUBERCULOSIS
     Dosage: 400MG,QD
     Route: 048
     Dates: start: 20190423, end: 20190502
  2. SIRTURO [Suspect]
     Active Substance: BEDAQUILINE FUMARATE
     Dosage: 400 MG, QD
     Route: 048
     Dates: start: 20190507, end: 20190512
  3. SODIUM PARA AMINOSALICYLATE [Suspect]
     Active Substance: AMINOSALICYLATE SODIUM
     Indication: TUBERCULOSIS
     Dosage: 10000 MG,TID
     Route: 048
     Dates: start: 20190423, end: 20190502
  4. SIRTURO [Suspect]
     Active Substance: BEDAQUILINE FUMARATE
     Route: 048
     Dates: start: 20190513
  5. LINEZOLID. [Suspect]
     Active Substance: LINEZOLID
     Dosage: 600 MG,QD
     Route: 041
     Dates: start: 20190507
  6. CYCLOSERINE. [Suspect]
     Active Substance: CYCLOSERINE
     Indication: TUBERCULOSIS
     Dosage: 500MG, BID
     Route: 048
     Dates: start: 20190517
  7. LINEZOLID. [Suspect]
     Active Substance: LINEZOLID
     Indication: TUBERCULOSIS
     Dosage: 600,QD
     Route: 048
     Dates: start: 20190423, end: 20190502
  8. CLOFAZIMINE [Suspect]
     Active Substance: CLOFAZIMINE
     Indication: TUBERCULOSIS
     Dosage: 300MG, BID
     Route: 048
     Dates: start: 20190423, end: 20190502
  9. CLOFAZIMINE [Suspect]
     Active Substance: CLOFAZIMINE
     Dosage: 100MG,BID
     Route: 048
     Dates: start: 20190513
  10. MOXIFLOXACIN. [Suspect]
     Active Substance: MOXIFLOXACIN
     Indication: TUBERCULOSIS
     Dosage: 400MG,QD
     Route: 048
     Dates: start: 20190507, end: 20190512

REACTIONS (2)
  - Gastrointestinal disorder [Recovering/Resolving]
  - Pneumonia [Recovering/Resolving]

NARRATIVE: CASE EVENT DATE: 20190502
